FAERS Safety Report 23500076 (Version 2)
Quarter: 2024Q1

REPORT INFORMATION
  Report Type: Spontaneous
  Country: US (occurrence: US)
  Receive Date: 20240208
  Receipt Date: 20240318
  Transmission Date: 20240410
  Serious: Yes (Death, Other)
  Sender: FDA-Public Use
  Company Number: US-009507513-2402USA001493

PATIENT
  Sex: Male

DRUGS (1)
  1. KEYTRUDA [Suspect]
     Active Substance: PEMBROLIZUMAB
     Indication: Hepatic cancer
     Dosage: UNK
     Route: 042
     Dates: start: 202106, end: 202107

REACTIONS (5)
  - Malignant neoplasm progression [Fatal]
  - Hospice care [Unknown]
  - Pain of skin [Unknown]
  - Scab [Unknown]
  - Skin discolouration [Unknown]

NARRATIVE: CASE EVENT DATE: 20210101
